FAERS Safety Report 11294339 (Version 1)
Quarter: 2015Q3

REPORT INFORMATION
  Report Type: Spontaneous
  Country: US (occurrence: US)
  Receive Date: 20150722
  Receipt Date: 20150722
  Transmission Date: 20151125
  Serious: No
  Sender: FDA-Public Use
  Company Number: US-ELI_LILLY_AND_COMPANY-US200805003017

PATIENT
  Age: 80 Year
  Sex: Female

DRUGS (4)
  1. GLYBURIDE. [Concomitant]
     Active Substance: GLYBURIDE
     Dosage: 25 MG, UNK
  2. TENIPOSIDE. [Concomitant]
     Active Substance: TENIPOSIDE
     Indication: SLEEP DISORDER
  3. EVISTA [Suspect]
     Active Substance: RALOXIFENE HYDROCHLORIDE
     Dosage: 60 MG, DAILY (1/D)
  4. VASOTEC [Concomitant]
     Active Substance: ENALAPRIL MALEATE
     Dosage: 20 MG, UNK

REACTIONS (2)
  - Breast mass [Not Recovered/Not Resolved]
  - Breast enlargement [Not Recovered/Not Resolved]
